FAERS Safety Report 9405813 (Version 1)
Quarter: 2013Q3

REPORT INFORMATION
  Report Type: Spontaneous
  Country: US (occurrence: US)
  Receive Date: 20130717
  Receipt Date: 20130717
  Transmission Date: 20140515
  Serious: Yes (Other)
  Sender: FDA-Public Use
  Company Number: US-009507513-1307USA006654

PATIENT
  Sex: Male

DRUGS (1)
  1. MIRTAZAPINE [Suspect]

REACTIONS (1)
  - Paralysis [Not Recovered/Not Resolved]
